FAERS Safety Report 6218759-X (Version None)
Quarter: 2009Q2

REPORT INFORMATION
  Report Type: 
  Country: None (occurrence: None)
  Receive Date: 20090608
  Receipt Date: 20090527
  Transmission Date: 20091009
  Serious: Yes (Hospitalization, Other)
  Sender: FDA-Public Use
  Company Number: NO-PFIZER INC-2009218989

PATIENT
  Age: 80 Year

DRUGS (6)
  1. ZOLOFT [Suspect]
     Route: 048
     Dates: end: 20090401
  2. MAREVAN [Interacting]
     Indication: ATRIAL FIBRILLATION
     Route: 048
     Dates: end: 20090401
  3. SELO-ZOK [Concomitant]
     Dosage: 100 MG IN THE MORNING ANG 50 MG IN THE EVENING
     Route: 048
  4. OMNIC [Concomitant]
     Route: 048
  5. NEXIUM [Concomitant]
     Indication: GASTRIC ULCER
     Route: 048
  6. REMERON [Concomitant]

REACTIONS (1)
  - GASTROINTESTINAL HAEMORRHAGE [None]
